FAERS Safety Report 7380338 (Version 2)
Quarter: 2020Q3

REPORT INFORMATION
  Report Type: Report from Study
  Country: US (occurrence: US)
  Receive Date: 20100507
  Receipt Date: 20100603
  Transmission Date: 20201105
  Serious: Yes (Other)
  Sender: FDA-Public Use
  Company Number: US-ASTRAZENECA-2010SE20357

PATIENT
  Age: 742 Month
  Sex: Female
  Weight: 62.8 kg

DRUGS (4)
  1. LISINOPRIL. [Suspect]
     Active Substance: LISINOPRIL
  2. CEDIRANIB. [Suspect]
     Active Substance: CEDIRANIB
     Indication: NON-SMALL CELL LUNG CANCER
     Route: 048
     Dates: start: 20091012, end: 20100320
  3. PEMETREXED. [Suspect]
     Active Substance: PEMETREXED
     Indication: NON-SMALL CELL LUNG CANCER
     Dosage: 500 MG/M2 ON 8TH DAY OF CYCLE1, FROM CYCLE2 ON 1ST DAY OF EVERY 21 DAY CYCLE
     Route: 042
     Dates: start: 20091012, end: 20100312
  4. UNSPECIFIED INGREDIENT [Suspect]
     Active Substance: UNSPECIFIED INGREDIENT
     Route: 042

REACTIONS (1)
  - Blood creatinine increased [Recovering/Resolving]

NARRATIVE: CASE EVENT DATE: 20100329
